FAERS Safety Report 8352690-9 (Version None)
Quarter: 2012Q2

REPORT INFORMATION
  Report Type: 
  Country: None (occurrence: None)
  Receive Date: 20120509
  Receipt Date: 20120503
  Transmission Date: 20120825
  Serious: Yes (Death, Other)
  Sender: FDA-Public Use
  Company Number: 2012SP023580

PATIENT

DRUGS (2)
  1. TEMODAL [Suspect]
     Indication: BRAIN NEOPLASM
  2. CARMUSTINE [Suspect]
     Indication: BRAIN NEOPLASM

REACTIONS (3)
  - LUNG DISORDER [None]
  - GENERAL PHYSICAL HEALTH DETERIORATION [None]
  - ACUTE RESPIRATORY FAILURE [None]
